FAERS Safety Report 6344057-X (Version None)
Quarter: 2009Q3

REPORT INFORMATION
  Report Type: 
  Country: None (occurrence: None)
  Receive Date: 20090904
  Receipt Date: 20090904
  Transmission Date: 20100115
  Serious: Yes (Other)
  Sender: FDA-Public Use
  Company Number: None

PATIENT
  Age: 14 Year
  Sex: Female
  Weight: 76.2043 kg

DRUGS (3)
  1. SINGULAIR [Suspect]
     Indication: ASTHMA
     Dosage: ONE PILL AT BEDTIME 1 NIGHTLY PO
     Route: 048
     Dates: start: 20030701, end: 20090903
  2. SINGULAIR [Suspect]
     Indication: HYPERSENSITIVITY
     Dosage: ONE PILL AT BEDTIME 1 NIGHTLY PO
     Route: 048
     Dates: start: 20030701, end: 20090903
  3. SINGULAIR [Suspect]

REACTIONS (12)
  - ABNORMAL BEHAVIOUR [None]
  - AGGRESSION [None]
  - AGITATION [None]
  - ANGER [None]
  - CONTUSION [None]
  - CRYING [None]
  - DEPRESSION [None]
  - HALLUCINATION [None]
  - INTENTIONAL SELF-INJURY [None]
  - SCHOOL REFUSAL [None]
  - SOCIAL AVOIDANT BEHAVIOUR [None]
  - THERMAL BURN [None]
